FAERS Safety Report 5693919-5 (Version None)
Quarter: 2008Q2

REPORT INFORMATION
  Report Type: 
  Country: None (occurrence: None)
  Receive Date: 20080403
  Receipt Date: 20080323
  Transmission Date: 20081010
  Serious: Yes (Other)
  Sender: FDA-Public Use
  Company Number: US-PFIZER INC-2008022105

PATIENT
  Sex: Female
  Weight: 59 kg

DRUGS (4)
  1. GEODON [Suspect]
     Indication: BIPOLAR DISORDER
  2. GEODON [Suspect]
  3. PROZAC [Concomitant]
  4. ALL OTHER THERAPEUTIC PRODUCTS [Concomitant]

REACTIONS (5)
  - AMNESIA [None]
  - BRAIN NEOPLASM [None]
  - BRAIN OEDEMA [None]
  - DRUG INEFFECTIVE [None]
  - NERVOUSNESS [None]
